FAERS Safety Report 11740886 (Version 1)
Quarter: 2015Q4

REPORT INFORMATION
  Report Type: Spontaneous
  Country: US (occurrence: US)
  Receive Date: 20151115
  Receipt Date: 20151115
  Transmission Date: 20160304
  Serious: No
  Sender: FDA-Public Use
  Company Number: PHEH2015US022688

PATIENT
  Sex: Female

DRUGS (1)
  1. SANDOSTATIN LAR DEPOT [Suspect]
     Active Substance: OCTREOTIDE ACETATE
     Indication: NEUROENDOCRINE TUMOUR
     Dosage: 60 MG, EVERY 03 WEEKS (SUPPLEMENTED WITH 100 MG AS NEEDED IF HAVING DIARRHEA)
     Route: 065

REACTIONS (3)
  - Nausea [Unknown]
  - Inappropriate schedule of drug administration [Unknown]
  - Vomiting [Unknown]
